FAERS Safety Report 10007207 (Version 1)
Quarter: 2014Q1

REPORT INFORMATION
  Report Type: Spontaneous
  Country: US (occurrence: US)
  Receive Date: 20140313
  Receipt Date: 20140313
  Transmission Date: 20141002
  Serious: Yes (Other)
  Sender: FDA-Public Use
  Company Number: US-PFIZER INC-2014068661

PATIENT
  Age: 82 Year
  Sex: Male
  Weight: 81.18 kg

DRUGS (2)
  1. PROTONIX [Suspect]
     Indication: OESOPHAGEAL DISORDER
     Dosage: UNK
  2. CARVEDILOL [Concomitant]
     Dosage: 12.5 MG, DAILY

REACTIONS (1)
  - Myocardial infarction [Unknown]
